FAERS Safety Report 9928816 (Version 5)
Quarter: 2014Q2

REPORT INFORMATION
  Report Type: Spontaneous
  Country: US (occurrence: US)
  Receive Date: 20140227
  Receipt Date: 20140616
  Transmission Date: 20141212
  Serious: Yes (Hospitalization, Other)
  Sender: FDA-Public Use
  Company Number: US-009507513-1103USA00266

PATIENT
  Sex: Female
  Weight: 64.86 kg

DRUGS (6)
  1. FOSAMAX [Suspect]
     Indication: OSTEOPENIA
     Dosage: 10 MG, QD
     Route: 048
     Dates: start: 200007, end: 200012
  2. FOSAMAX [Suspect]
     Dosage: 70 MG, QW
     Route: 048
     Dates: start: 200012, end: 20080711
  3. FOSAMAX [Suspect]
     Dosage: 5 MG QD
     Route: 048
  4. ALENDRONATE SODIUM [Suspect]
     Indication: OSTEOPENIA
     Dosage: 70 MG, QW
     Route: 048
     Dates: start: 20080711, end: 200908
  5. CALCIUM (UNSPECIFIED) [Concomitant]
  6. VITAMIN D (UNSPECIFIED) [Concomitant]

REACTIONS (22)
  - Intramedullary rod insertion [Recovered/Resolved]
  - Femur fracture [Recovered/Resolved]
  - Fall [Unknown]
  - Femur fracture [Recovered/Resolved]
  - Foot fracture [Unknown]
  - Tendonitis [Unknown]
  - Hypercholesterolaemia [Unknown]
  - Blood homocysteine increased [Unknown]
  - Blood triglycerides increased [Unknown]
  - Blood glucose increased [Unknown]
  - Cerumen impaction [Unknown]
  - Haemorrhoids [Unknown]
  - Tendonitis [Unknown]
  - Tooth fracture [Unknown]
  - Tooth disorder [Unknown]
  - Tooth fracture [Unknown]
  - Dental fistula [Unknown]
  - Thermal burn [Unknown]
  - Gingival bleeding [Unknown]
  - Lyme disease [Unknown]
  - Cardiac disorder [Unknown]
  - Musculoskeletal pain [Unknown]
